FAERS Safety Report 16903563 (Version 4)
Quarter: 2019Q4

REPORT INFORMATION
  Report Type: Spontaneous
  Country: AU (occurrence: AU)
  Receive Date: 20191010
  Receipt Date: 20191127
  Transmission Date: 20200122
  Serious: Yes (Other)
  Sender: FDA-Public Use
  Company Number: AU-PFIZER INC-2019434454

PATIENT
  Age: 36 Year
  Sex: Male
  Weight: 110 kg

DRUGS (3)
  1. PRISTIQ EXTENDED-RELEASE [Suspect]
     Active Substance: DESVENLAFAXINE SUCCINATE
     Dosage: 100 MG, UNK
  2. PRISTIQ EXTENDED-RELEASE [Suspect]
     Active Substance: DESVENLAFAXINE SUCCINATE
     Dosage: 200 MG, UNK
  3. PRISTIQ EXTENDED-RELEASE [Suspect]
     Active Substance: DESVENLAFAXINE SUCCINATE
     Indication: DEPRESSION
     Dosage: 50 MG, UNK
     Dates: start: 201811

REACTIONS (20)
  - Headache [Not Recovered/Not Resolved]
  - Endocrine disorder [Recovering/Resolving]
  - Mental impairment [Not Recovered/Not Resolved]
  - Abdominal pain upper [Unknown]
  - Emotional disorder [Unknown]
  - Libido disorder [Unknown]
  - Haematochezia [Unknown]
  - Nausea [Not Recovered/Not Resolved]
  - Gastrointestinal pain [Unknown]
  - Withdrawal syndrome [Recovering/Resolving]
  - Paraesthesia [Not Recovered/Not Resolved]
  - Disorientation [Not Recovered/Not Resolved]
  - Coordination abnormal [Not Recovered/Not Resolved]
  - Sleep disorder [Not Recovered/Not Resolved]
  - Cognitive disorder [Unknown]
  - Product dose omission [Unknown]
  - Tinnitus [Not Recovered/Not Resolved]
  - Photophobia [Not Recovered/Not Resolved]
  - Decreased appetite [Not Recovered/Not Resolved]
  - Insomnia [Not Recovered/Not Resolved]
